FAERS Safety Report 6739929-8 (Version None)
Quarter: 2010Q2

REPORT INFORMATION
  Report Type: 
  Country: None (occurrence: None)
  Receive Date: 20100525
  Receipt Date: 20100513
  Transmission Date: 20101027
  Serious: Yes (Other)
  Sender: FDA-Public Use
  Company Number: JP-PFIZER INC-2010061920

PATIENT

DRUGS (1)
  1. ZITHROMAX [Suspect]

REACTIONS (1)
  - INTRAOCULAR PRESSURE INCREASED [None]
